FAERS Safety Report 11335553 (Version 1)
Quarter: 2015Q3

REPORT INFORMATION
  Report Type: Spontaneous
  Country: US (occurrence: None)
  Receive Date: 20150731
  Receipt Date: 20150731
  Transmission Date: 20151125
  Serious: Yes (Hospitalization)
  Sender: FDA-Public Use
  Company Number: None

PATIENT
  Age: 67 Year
  Sex: Female
  Weight: 98.43 kg

DRUGS (1)
  1. RUXOLITINIB 5 MG TABS [Suspect]
     Active Substance: RUXOLITINIB
     Indication: CHRONIC MYELOID LEUKAEMIA
     Route: 048
     Dates: start: 20150513, end: 20150723

REACTIONS (5)
  - Leukocytosis [None]
  - Dizziness [None]
  - Haematoma [None]
  - Dyspnoea [None]
  - Vision blurred [None]

NARRATIVE: CASE EVENT DATE: 20150723
